FAERS Safety Report 9158200 (Version 1)
Quarter: 2013Q1

REPORT INFORMATION
  Report Type: Spontaneous
  Country: US (occurrence: US)
  Receive Date: 20130312
  Receipt Date: 20130312
  Transmission Date: 20140127
  Serious: Yes (Other)
  Sender: FDA-Public Use
  Company Number: US-BAYER-2013-027746

PATIENT
  Age: 24 Year
  Sex: Female
  Weight: 117.46 kg

DRUGS (18)
  1. YASMIN [Suspect]
  2. CEPHALEXIN [Concomitant]
     Dosage: 500 MG, UNK
     Route: 048
     Dates: start: 20060301
  3. METROGEL-VAGINAL [METRONIDAZOLE] [Concomitant]
     Dosage: UNK
     Route: 061
     Dates: start: 20060508
  4. LEVAQUIN [Concomitant]
     Dosage: 500 MG, UNK
     Dates: start: 20060508
  5. PREDNISONE [Concomitant]
     Dosage: UNK
     Route: 048
     Dates: start: 20060508
  6. ALBUTEROL [Concomitant]
     Dosage: UNK
     Dates: start: 20060508
  7. HYDROCODONE W/APAP [Concomitant]
     Dosage: 5/500 MG, UNK
     Route: 048
     Dates: start: 20060511
  8. Z-PAK [Concomitant]
     Dosage: UNK
     Route: 048
     Dates: start: 20060511
  9. XOPENEX [Concomitant]
     Dosage: 1.25 MG, UNK
     Dates: start: 20060511
  10. WESTCORT [Concomitant]
     Dosage: UNK
     Route: 061
     Dates: start: 200605
  11. HYDROCORTISONE [Concomitant]
     Dosage: UNK
     Route: 061
     Dates: start: 200605
  12. IBUPROFEN [IBUPROFEN] [Concomitant]
     Dosage: 800 MG, UNK
     Route: 048
     Dates: start: 20060523
  13. TRAMADOL [Concomitant]
     Indication: HEADACHE
     Dosage: UNK
     Route: 048
     Dates: start: 20060522
  14. VICODIN [Concomitant]
     Indication: HEADACHE
     Dosage: UNK
     Route: 048
     Dates: start: 20060522
  15. TRIMETHOBENZAMIDE [Concomitant]
     Dosage: 300 MG, UNK
     Route: 048
  16. TOPAMAX [Concomitant]
     Dosage: UNK
     Route: 048
     Dates: start: 20060525
  17. RITALIN [Concomitant]
     Indication: ATTENTION DEFICIT/HYPERACTIVITY DISORDER
     Dosage: UNK
     Route: 048
     Dates: start: 200605
  18. WELLBUTRIN [Concomitant]
     Indication: DEPRESSION
     Dosage: UNK
     Route: 048
     Dates: start: 200605

REACTIONS (1)
  - Thrombophlebitis superficial [None]
